FAERS Safety Report 21693414 (Version 2)
Quarter: 2022Q4

REPORT INFORMATION
  Report Type: Report from Study
  Country: US (occurrence: US)
  Receive Date: 20221207
  Receipt Date: 20221209
  Transmission Date: 20230112
  Serious: Yes (Death, Hospitalization, Other)
  Sender: FDA-Public Use
  Company Number: US-BRISTOL-MYERS SQUIBB COMPANY-2022-147745

PATIENT
  Age: 71 Year
  Sex: Male
  Weight: 58.5 kg

DRUGS (3)
  1. IPILIMUMAB [Suspect]
     Active Substance: IPILIMUMAB
     Indication: Small cell lung cancer recurrent
     Route: 042
     Dates: start: 20221011, end: 20221011
  2. NIVOLUMAB [Suspect]
     Active Substance: NIVOLUMAB
     Indication: Small cell lung cancer recurrent
     Route: 042
     Dates: start: 20221011, end: 20221011
  3. PLINABULIN [Suspect]
     Active Substance: PLINABULIN
     Indication: Small cell lung cancer recurrent
     Route: 042
     Dates: start: 20221011, end: 20221011

REACTIONS (3)
  - Pneumonia aspiration [Fatal]
  - Small cell lung cancer [Fatal]
  - Immune-mediated enterocolitis [Fatal]

NARRATIVE: CASE EVENT DATE: 20221125
